FAERS Safety Report 6345583-X (Version None)
Quarter: 2009Q3

REPORT INFORMATION
  Report Type: 
  Country: None (occurrence: None)
  Receive Date: 20090821
  Receipt Date: 20090504
  Transmission Date: 20100115
  Serious: Yes (Hospitalization)
  Sender: FDA-Public Use
  Company Number: 8038175

PATIENT
  Age: 30 Year
  Sex: Female
  Weight: 52.3 kg

DRUGS (7)
  1. CIMZIA [Suspect]
     Indication: CROHN'S DISEASE
     Dosage: 400 MG SC
     Route: 058
     Dates: start: 20081001, end: 20081001
  2. RECTAL STEROIDS [Concomitant]
  3. MINOCYCLINE HCL [Concomitant]
  4. KLONOPIN [Concomitant]
  5. TRAZODONE HCL [Concomitant]
  6. ACTONEL [Concomitant]
  7. VITAMINS [Concomitant]

REACTIONS (8)
  - ACNE CYSTIC [None]
  - ALOPECIA [None]
  - ANXIETY [None]
  - BEDRIDDEN [None]
  - CROHN'S DISEASE [None]
  - DEPRESSED MOOD [None]
  - MUSCULOSKELETAL STIFFNESS [None]
  - RASH [None]
